FAERS Safety Report 5178847-6 (Version None)
Quarter: 2006Q4

REPORT INFORMATION
  Report Type: 
  Country: None (occurrence: None)
  Receive Date: 20061208
  Receipt Date: 20061127
  Transmission Date: 20070319
  Serious: Yes (Hospitalization)
  Sender: FDA-Public Use
  Company Number: 233014

PATIENT
  Age: 71 Year
  Sex: Female

DRUGS (5)
  1. BEVACIZUMAB [Suspect]
     Indication: BREAST CANCER METASTATIC
     Dosage: 700 MG, UNK, INTRAVENOUS
     Route: 042
     Dates: start: 20061026, end: 20061109
  2. STUDY DRUG   (INVESTIGATIONAL DRUG) [Suspect]
     Indication: BREAST CANCER METASTATIC
     Dosage: 437 MG, UNK; INTRAVENOUS
     Route: 042
     Dates: start: 20061026, end: 20061109
  3. G-CSF (FILGRASTIM) [Suspect]
     Indication: DRUG USE FOR UNKNOWN INDICATION
     Dates: start: 20061027
  4. PERCOCET [Concomitant]
  5. COLACE               (DOCUSATE SODIUM) [Concomitant]

REACTIONS (12)
  - ANGIOPATHY [None]
  - ARTHRALGIA [None]
  - CHEST X-RAY ABNORMAL [None]
  - COUGH [None]
  - DYSPNOEA [None]
  - DYSURIA [None]
  - FLATULENCE [None]
  - MENTAL STATUS CHANGES [None]
  - MYALGIA [None]
  - PLEURAL EFFUSION [None]
  - PYREXIA [None]
  - TACHYCARDIA [None]
